FAERS Safety Report 14369754 (Version 2)
Quarter: 2020Q1

REPORT INFORMATION
  Report Type: Spontaneous
  Country: IN (occurrence: IN)
  Receive Date: 20180110
  Receipt Date: 20200203
  Transmission Date: 20200409
  Serious: Yes (Other)
  Sender: FDA-Public Use
  Company Number: IN-CIPLA LTD.-2017IN30955

PATIENT

DRUGS (5)
  1. ONDANSETRON [Concomitant]
     Active Substance: ONDANSETRON
     Indication: PRODUCT USED FOR UNKNOWN INDICATION
     Dosage: UNK
     Route: 065
  2. IRINOTECAN [Suspect]
     Active Substance: IRINOTECAN
     Dosage: 20 MILLIGRAM/SQ. METER, FOR 5 DAYS EVERY 3 WEEKS FOR 1 YEAR
     Route: 048
  3. IRINOTECAN [Suspect]
     Active Substance: IRINOTECAN
     Dosage: UNK, INTRAVENOUS FORMULATION DILUTED IN 100ML OF CRANBERRY JUICE
     Route: 048
  4. IRINOTECAN [Suspect]
     Active Substance: IRINOTECAN
     Indication: HEPATOBLASTOMA RECURRENT
     Dosage: 20 MG/M2 PER DAY, 3 WEEKLY
     Route: 042
  5. COTRIMOXAZOLE [Concomitant]
     Active Substance: SULFAMETHOXAZOLE\TRIMETHOPRIM
     Indication: PRODUCT USED FOR UNKNOWN INDICATION
     Dosage: UNK
     Route: 065

REACTIONS (2)
  - Disease recurrence [Unknown]
  - Incorrect route of product administration [Unknown]
